FAERS Safety Report 17055117 (Version 1)
Quarter: 2019Q4

REPORT INFORMATION
  Report Type: Spontaneous
  Country: CA (occurrence: CA)
  Receive Date: 20191120
  Receipt Date: 20191120
  Transmission Date: 20200122
  Serious: Yes (Other)
  Sender: FDA-Public Use
  Company Number: CA-PFIZER INC-2019498420

PATIENT
  Age: 59 Year
  Sex: Female
  Weight: 94 kg

DRUGS (6)
  1. IRON [Concomitant]
     Active Substance: IRON
     Dosage: UNK
  2. SENOKOT [Concomitant]
     Active Substance: SENNOSIDES
     Dosage: UNK
  3. ERGOCALCIFEROL. [Concomitant]
     Active Substance: ERGOCALCIFEROL
     Dosage: UNK
  4. CARBOPLATIN. [Concomitant]
     Active Substance: CARBOPLATIN
     Dosage: UNK
  5. PACLITAXEL. [Suspect]
     Active Substance: PACLITAXEL
     Indication: OVARIAN CANCER
     Dosage: 350 MG, UNK
     Route: 042
  6. TYLENOL EXTRA STRENGTH [Concomitant]
     Active Substance: ACETAMINOPHEN
     Dosage: UNK

REACTIONS (4)
  - Dyspnoea [Recovered/Resolved]
  - Back pain [Recovered/Resolved]
  - Oxygen saturation decreased [Recovered/Resolved]
  - Flushing [Recovered/Resolved]
